FAERS Safety Report 4645634-4 (Version None)
Quarter: 2005Q2

REPORT INFORMATION
  Report Type: 
  Country: None (occurrence: None)
  Receive Date: 20050331
  Receipt Date: 20041206
  Transmission Date: 20051028
  Serious: No
  Sender: FDA-Public Use
  Company Number: 04P-163-0282815-00

PATIENT
  Age: 73 Year
  Sex: Female
  Weight: 73.4827 kg

DRUGS (10)
  1. HUMIRA [Suspect]
     Indication: RHEUMATOID ARTHRITIS
     Dosage: 40 MG, 1 IN 2 WK, PER ORAL
     Route: 048
     Dates: start: 20040116, end: 20041119
  2. HUMIRA [Suspect]
     Indication: RHEUMATOID ARTHRITIS
     Dosage: 40 MG, 1 IN 2 WK, PER ORAL
     Route: 048
     Dates: start: 20041203
  3. HUMIRA [Suspect]
     Dosage: 40 MG, 1 IN 2 WK, SUBCUTANEOUS
     Route: 058
     Dates: start: 20041203
  4. BENAZEPRIL HYDROCHLORIDE [Concomitant]
  5. HUMILOG INSULIN [Concomitant]
  6. NOVILIN INSULIN [Concomitant]
  7. GLOCOPHAGE [Concomitant]
  8. LEVOXAL [Concomitant]
  9. TOPORAL [Concomitant]
  10. PREDNISONE [Concomitant]

REACTIONS (1)
  - HERPES ZOSTER [None]
